FAERS Safety Report 26161869 (Version 1)
Quarter: 2025Q4

REPORT INFORMATION
  Report Type: Spontaneous
  Country: US (occurrence: None)
  Receive Date: 20251216
  Receipt Date: 20251216
  Transmission Date: 20260117
  Serious: No
  Sender: ENDO
  Company Number: US-ENDO USA, INC.-2025-000709

PATIENT
  Age: 55 Year
  Sex: Male

DRUGS (1)
  1. XIAFLEX [Suspect]
     Active Substance: COLLAGENASE CLOSTRIDIUM HISTOLYTICUM
     Indication: Peyronie^s disease
     Dosage: 0.58 MILLIGRAM, UNKNOWN

REACTIONS (1)
  - Cough [Not Recovered/Not Resolved]

NARRATIVE: CASE EVENT DATE: 20250201
